FAERS Safety Report 15040812 (Version 1)
Quarter: 2018Q2

REPORT INFORMATION
  Report Type: Spontaneous
  Country: SE (occurrence: SE)
  Receive Date: 20180620
  Receipt Date: 20180620
  Transmission Date: 20180711
  Serious: Yes (Other)
  Sender: FDA-Public Use
  Company Number: SE-BEH-2018091759

PATIENT
  Sex: Male

DRUGS (2)
  1. CONFIDEX [Suspect]
     Active Substance: COAGULATION FACTOR IX HUMAN\COAGULATION FACTOR VII HUMAN\COAGULATION FACTOR X HUMAN\PROTEIN C\PROTEIN S HUMAN\PROTHROMBIN
     Indication: HAEMORRHAGE
     Dosage: 1500 DF, TOT
     Route: 065
     Dates: start: 20180529, end: 20180529
  2. TRANEXAMIC ACID. [Concomitant]
     Active Substance: TRANEXAMIC ACID

REACTIONS (3)
  - Confusional state [Unknown]
  - Embolic stroke [Unknown]
  - Aphasia [Unknown]

NARRATIVE: CASE EVENT DATE: 20180529
